FAERS Safety Report 5671623-7 (Version None)
Quarter: 2008Q1

REPORT INFORMATION
  Report Type: 
  Country: None (occurrence: None)
  Receive Date: 20080313
  Receipt Date: 20080303
  Transmission Date: 20080703
  Serious: Yes (Other)
  Sender: FDA-Public Use
  Company Number: GXKR2008AT02255

PATIENT
  Age: 5 Year
  Sex: Male

DRUGS (4)
  1. CARBOPLATIN [Suspect]
     Indication: CHEMOTHERAPY
     Dosage: 4 X 300 MG/M2
  2. ETOPOSIDE [Suspect]
     Indication: CHEMOTHERAPY
     Dosage: 4 X 200 MG/M2
  3. AUTOLOGOUS TRANSPLANTATION [Concomitant]
  4. CHEMOTHERAPEUTICS NOS [Concomitant]

REACTIONS (4)
  - DRUG TOXICITY [None]
  - LUNG INFILTRATION [None]
  - OBLITERATIVE BRONCHIOLITIS [None]
  - PULMONARY MASS [None]
